FAERS Safety Report 17598323 (Version 5)
Quarter: 2020Q4

REPORT INFORMATION
  Report Type: Report from Study
  Country: IT (occurrence: IT)
  Receive Date: 20200330
  Receipt Date: 20201222
  Transmission Date: 20210113
  Serious: Yes (Death, Hospitalization)
  Sender: FDA-Public Use
  Company Number: NVSC2020IT087035

PATIENT
  Age: 71 Year
  Sex: Male
  Weight: 82 kg

DRUGS (6)
  1. TAFINLAR [Suspect]
     Active Substance: DABRAFENIB MESYLATE
     Indication: METASTATIC MALIGNANT MELANOMA
     Dosage: 150 MG, BID (300)
     Route: 048
     Dates: start: 20190318, end: 20200112
  2. LASIX [Concomitant]
     Active Substance: FUROSEMIDE
     Indication: GASTROINTESTINAL DISORDER PROPHYLAXIS
     Dosage: 30 UNK
     Route: 048
     Dates: start: 20191102
  3. DELTACORTENE [Concomitant]
     Active Substance: PREDNISONE
     Indication: PREMEDICATION
     Dosage: UNK
     Route: 048
  4. TRAMETINIB [Suspect]
     Active Substance: TRAMETINIB
     Indication: METASTATIC MALIGNANT MELANOMA
     Dosage: 2 MG
     Route: 048
     Dates: start: 20190318, end: 20200112
  5. LEVETIRACETAM. [Concomitant]
     Active Substance: LEVETIRACETAM
     Indication: METASTASES TO CENTRAL NERVOUS SYSTEM
     Dosage: 750 UNK
     Route: 048
     Dates: start: 20191110
  6. SOLDESAM [Concomitant]
     Active Substance: DEXAMETHASONE
     Indication: SEIZURE
     Dosage: 4 UNK
     Route: 048
     Dates: start: 20191102, end: 20191105

REACTIONS (12)
  - Metastatic malignant melanoma [Fatal]
  - Decreased appetite [Not Recovered/Not Resolved]
  - Pyrexia [Recovered/Resolved]
  - Flatulence [Recovered/Resolved]
  - Oral candidiasis [Not Recovered/Not Resolved]
  - Malignant neoplasm progression [Fatal]
  - Eye pain [Not Recovered/Not Resolved]
  - Pain in extremity [Not Recovered/Not Resolved]
  - Seizure [Recovered/Resolved]
  - Loss of consciousness [Recovered/Resolved]
  - Condition aggravated [Fatal]
  - Arthralgia [Not Recovered/Not Resolved]

NARRATIVE: CASE EVENT DATE: 201905
